FAERS Safety Report 8365396-7 (Version None)
Quarter: 2012Q2

REPORT INFORMATION
  Report Type: 
  Country: None (occurrence: None)
  Receive Date: 20120516
  Receipt Date: 20120501
  Transmission Date: 20120825
  Serious: Yes (Other)
  Sender: FDA-Public Use
  Company Number: CHPA2012US010268

PATIENT
  Sex: Female

DRUGS (2)
  1. PREDNISONE TAB [Suspect]
     Dosage: UNK, UNK
  2. EXCEDRIN EXTRA STRENGTH TABLETS [Suspect]
     Indication: SINUS HEADACHE
     Dosage: 1 DF, QD
     Route: 048
     Dates: start: 19800101

REACTIONS (5)
  - RASH PRURITIC [None]
  - PALPITATIONS [None]
  - INCORRECT DRUG ADMINISTRATION DURATION [None]
  - HYPERSENSITIVITY [None]
  - UNDERDOSE [None]
